FAERS Safety Report 8014098-5 (Version None)
Quarter: 2011Q4

REPORT INFORMATION
  Report Type: 
  Country: None (occurrence: None)
  Receive Date: 20111229
  Receipt Date: 20111222
  Transmission Date: 20120403
  Serious: Yes (Hospitalization)
  Sender: FDA-Public Use
  Company Number: US-MILLENNIUM PHARMACEUTICALS, INC.-2011-06562

PATIENT
  Age: 58 Year
  Sex: Male
  Weight: 87.982 kg

DRUGS (1)
  1. VELCADE [Suspect]
     Indication: MULTIPLE MYELOMA
     Dosage: 2.7 MG, CYCLIC
     Route: 042
     Dates: start: 20110517, end: 20110929

REACTIONS (5)
  - PERIRECTAL ABSCESS [None]
  - RECTAL HAEMORRHAGE [None]
  - PAIN [None]
  - HEMIANOPIA HOMONYMOUS [None]
  - SYNCOPE [None]
